FAERS Safety Report 6026579-4 (Version None)
Quarter: 2008Q4

REPORT INFORMATION
  Report Type: 
  Country: None (occurrence: None)
  Receive Date: 20081231
  Receipt Date: 20081216
  Transmission Date: 20090506
  Serious: Yes (Death, Hospitalization, Other)
  Sender: FDA-Public Use
  Company Number: 2008US-20012

PATIENT
  Age: 61 Year
  Sex: Female

DRUGS (7)
  1. VERAPAMIL [Suspect]
     Indication: HYPERTENSION
     Dosage: 360 MG,
  2. VERAPAMIL [Suspect]
     Indication: MIGRAINE PROPHYLAXIS
     Dosage: 360 MG,
  3. CALCIUM CHLORIDE (CALCIUM CHLORIDE) INFUSION [Suspect]
     Indication: HYPOGLYCAEMIA
  4. ESTROGENS CONJUCATED (ESTROGENS CONJUCATED) [Concomitant]
  5. PANTOPRAZOLE SODIUM [Concomitant]
  6. DAILY MULTIVITAMIN (DAILY MULTIVITAMIN) [Concomitant]
  7. CALCIUM GLUCONATE [Concomitant]

REACTIONS (21)
  - ANURIA [None]
  - BLOOD GLUCOSE INCREASED [None]
  - BRADYCARDIA [None]
  - CALCIPHYLAXIS [None]
  - CARDIAC ENZYMES INCREASED [None]
  - DERMATITIS BULLOUS [None]
  - HAEMODIALYSIS [None]
  - HEART RATE INCREASED [None]
  - HEPATIC NECROSIS [None]
  - HYPERCALCAEMIA [None]
  - HYPOTENSION [None]
  - IATROGENIC INJURY [None]
  - ILEITIS [None]
  - INTESTINAL ISCHAEMIA [None]
  - MULTI-ORGAN FAILURE [None]
  - OVERDOSE [None]
  - PANCREATIC ENZYMES INCREASED [None]
  - PRESYNCOPE [None]
  - RENAL TUBULAR NECROSIS [None]
  - SPLENIC INFARCTION [None]
  - TRANSAMINASES INCREASED [None]
